FAERS Safety Report 24752814 (Version 1)
Quarter: 2024Q4

REPORT INFORMATION
  Report Type: Spontaneous
  Country: US (occurrence: US)
  Receive Date: 20241219
  Receipt Date: 20241219
  Transmission Date: 20250115
  Serious: Yes (Other)
  Sender: GERON CORP
  Company Number: US-GERON-INTAKE-US-2020-2024

PATIENT

DRUGS (1)
  1. RYTELO [Suspect]
     Active Substance: IMETELSTAT SODIUM
     Indication: Product used for unknown indication
     Dosage: 7.1 MILLIGRAM/KILOGRAM, UNK
     Route: 042

REACTIONS (2)
  - Cytopenia [Recovered/Resolved]
  - Neutropenia [Recovered/Resolved]
